FAERS Safety Report 20999521 (Version 1)
Quarter: 2022Q2

REPORT INFORMATION
  Report Type: Spontaneous
  Country: FR (occurrence: FR)
  Receive Date: 20220623
  Receipt Date: 20220623
  Transmission Date: 20220721
  Serious: Yes (Other)
  Sender: FDA-Public Use
  Company Number: None

PATIENT
  Age: 56 Year
  Sex: Female
  Weight: 51 kg

DRUGS (2)
  1. RITUXIMAB [Suspect]
     Active Substance: RITUXIMAB
     Indication: Progressive multiple sclerosis
     Dosage: 1 DF EVERY 6 MONTHS
     Route: 042
     Dates: start: 20191031
  2. DALFAMPRIDINE [Suspect]
     Active Substance: DALFAMPRIDINE
     Indication: Progressive multiple sclerosis
     Dosage: 20 MG, 1X/DAY
     Route: 048
     Dates: start: 201406, end: 20220525

REACTIONS (2)
  - Cardiac failure [Not Recovered/Not Resolved]
  - Off label use [Unknown]

NARRATIVE: CASE EVENT DATE: 20220525
